APPROVED DRUG PRODUCT: KONAKION
Active Ingredient: PHYTONADIONE
Strength: 1MG/0.5ML
Dosage Form/Route: INJECTABLE;INJECTION
Application: N011745 | Product #001
Applicant: HOFFMANN LA ROCHE INC
Approved: Approved Prior to Jan 1, 1982 | RLD: No | RS: No | Type: DISCN